FAERS Safety Report 21664394 (Version 1)
Quarter: 2022Q4

REPORT INFORMATION
  Report Type: Spontaneous
  Country: NL (occurrence: NL)
  Receive Date: 20221130
  Receipt Date: 20221130
  Transmission Date: 20230113
  Serious: Yes (Life-Threatening)
  Sender: FDA-Public Use
  Company Number: NL-SLATE RUN PHARMACEUTICALS-22NL001428

PATIENT

DRUGS (2)
  1. DAPTOMYCIN [Suspect]
     Active Substance: DAPTOMYCIN
     Indication: Bacteroides test positive
     Dosage: UNK
  2. ERTAPENEM [Concomitant]
     Active Substance: ERTAPENEM
     Indication: Bacteroides test positive

REACTIONS (2)
  - Eosinophilic pneumonia acute [Recovering/Resolving]
  - Off label use [Recovered/Resolved]
